FAERS Safety Report 11771003 (Version 2)
Quarter: 2016Q1

REPORT INFORMATION
  Report Type: Report from Study
  Country: US (occurrence: US)
  Receive Date: 20151123
  Receipt Date: 20160126
  Transmission Date: 20160525
  Serious: Yes (Hospitalization)
  Sender: FDA-Public Use
  Company Number: US-AMGEN-USACT2015123063

PATIENT
  Age: 74 Year
  Sex: Female

DRUGS (4)
  1. DEXAMETHASONE. [Concomitant]
     Active Substance: DEXAMETHASONE
     Indication: NON-HODGKIN^S LYMPHOMA
     Dosage: UNK UNK, PER CHEMO REGIM
     Route: 065
     Dates: start: 20150911, end: 20151105
  2. CARFILZOMIB [Suspect]
     Active Substance: CARFILZOMIB
     Indication: NON-HODGKIN^S LYMPHOMA
     Dosage: 45 MG/M2, PER CHEMO REGIM
     Route: 065
     Dates: start: 20150911, end: 20151105
  3. LENALIDOMIDE [Concomitant]
     Active Substance: LENALIDOMIDE
     Indication: NON-HODGKIN^S LYMPHOMA
     Dosage: 15 MG, PER CHEMO REGIM
     Route: 065
     Dates: start: 20150911, end: 20151105
  4. ROMIDEPSIN [Concomitant]
     Active Substance: ROMIDEPSIN
     Indication: NON-HODGKIN^S LYMPHOMA
     Dosage: 8 MG/M2, UNK
     Route: 065
     Dates: start: 20150911, end: 20151105

REACTIONS (3)
  - Localised oedema [Unknown]
  - Oedema peripheral [Unknown]
  - Face oedema [Unknown]

NARRATIVE: CASE EVENT DATE: 20151116
